FAERS Safety Report 7204063-X (Version None)
Quarter: 2010Q4

REPORT INFORMATION
  Report Type: 
  Country: None (occurrence: None)
  Receive Date: 20101230
  Receipt Date: 20101222
  Transmission Date: 20110411
  Serious: Yes (Life-Threatening, Hospitalization)
  Sender: FDA-Public Use
  Company Number: US-ELI_LILLY_AND_COMPANY-US201012006173

PATIENT
  Age: 55 Year
  Sex: Male

DRUGS (1)
  1. CYMBALTA [Suspect]
     Indication: PAIN
     Dosage: 30 MG, UNKNOWN
     Dates: start: 20101201, end: 20101201

REACTIONS (2)
  - CARDIAC ARREST [None]
  - OFF LABEL USE [None]
